FAERS Safety Report 8045626-1 (Version None)
Quarter: 2012Q1

REPORT INFORMATION
  Report Type: 
  Country: None (occurrence: None)
  Receive Date: 20120113
  Receipt Date: 20120105
  Transmission Date: 20120608
  Serious: Yes (Hospitalization)
  Sender: FDA-Public Use
  Company Number: US-PURDUE-USA-2012-0080507

PATIENT
  Sex: Male

DRUGS (2)
  1. OXYCONTIN [Suspect]
     Indication: PRODUCT USED FOR UNKNOWN INDICATION
     Dosage: 40 MG, SEE TEXT
     Route: 048
  2. OXYCONTIN [Suspect]
     Dosage: 20 MG, BID
     Route: 048

REACTIONS (4)
  - GASTROENTERITIS VIRAL [None]
  - CYSTITIS [None]
  - DECREASED APPETITE [None]
  - DEHYDRATION [None]
